FAERS Safety Report 7952618-7 (Version None)
Quarter: 2011Q4

REPORT INFORMATION
  Report Type: 
  Country: None (occurrence: None)
  Receive Date: 20111201
  Receipt Date: 20111125
  Transmission Date: 20120403
  Serious: Yes (Life-Threatening)
  Sender: FDA-Public Use
  Company Number: US-JNJFOC-20111112472

PATIENT
  Sex: Female
  Weight: 53.52 kg

DRUGS (1)
  1. INVEGA SUSTENNA [Suspect]
     Indication: BIPOLAR DISORDER
     Route: 030
     Dates: start: 20111122

REACTIONS (6)
  - SWOLLEN TONGUE [None]
  - SPEECH DISORDER [None]
  - PAIN [None]
  - TRISMUS [None]
  - UNEVALUABLE EVENT [None]
  - HYPERSENSITIVITY [None]
